FAERS Safety Report 12866762 (Version 1)
Quarter: 2016Q4

REPORT INFORMATION
  Report Type: Spontaneous
  Country: PL (occurrence: PL)
  Receive Date: 20161020
  Receipt Date: 20161020
  Transmission Date: 20170207
  Serious: Yes (Other)
  Sender: FDA-Public Use
  Company Number: PL-PFIZER INC-2016483755

PATIENT
  Age: 46 Year
  Sex: Female

DRUGS (8)
  1. ALPRAZOLAM. [Suspect]
     Active Substance: ALPRAZOLAM
     Indication: INSOMNIA
  2. ALPRAZOLAM. [Suspect]
     Active Substance: ALPRAZOLAM
     Indication: ANXIETY
  3. GABAGAMMA [Suspect]
     Active Substance: GABAPENTIN
     Dosage: UNK
  4. OPATANOL [Suspect]
     Active Substance: OLOPATADINE
     Dosage: UNK
  5. XYLOMETAZOLIN [Suspect]
     Active Substance: XYLOMETAZOLINE HYDROCHLORIDE
     Dosage: UNK
  6. DYMISTA [Suspect]
     Active Substance: AZELASTINE HYDROCHLORIDE\FLUTICASONE PROPIONATE
     Dosage: UNK
  7. ALPRAZOLAM. [Suspect]
     Active Substance: ALPRAZOLAM
     Indication: MOOD SWINGS
     Dosage: UNK
  8. DUSPATALIN /00139402/ [Suspect]
     Active Substance: MEBEVERINE HYDROCHLORIDE
     Dosage: UNK

REACTIONS (9)
  - Dry skin [Unknown]
  - Eye pruritus [Unknown]
  - Parosmia [Recovering/Resolving]
  - Nasal congestion [Unknown]
  - Myalgia [Unknown]
  - Cough [Unknown]
  - Suicidal ideation [Unknown]
  - Dry throat [Unknown]
  - Disturbance in attention [Unknown]
